FAERS Safety Report 6023327-9 (Version None)
Quarter: 2008Q4

REPORT INFORMATION
  Report Type: 
  Country: None (occurrence: None)
  Receive Date: 20081230
  Receipt Date: 20081219
  Transmission Date: 20090506
  Serious: Yes (Other)
  Sender: FDA-Public Use
  Company Number: US-ELI_LILLY_AND_COMPANY-US200811004566

PATIENT
  Sex: Male
  Weight: 92.517 kg

DRUGS (9)
  1. BYETTA [Suspect]
     Indication: DIABETES MELLITUS
     Dosage: 5 UG, 2/D
     Route: 058
     Dates: start: 20050725, end: 20050823
  2. BYETTA [Suspect]
     Dosage: 10 UG, 2/D
     Route: 058
     Dates: start: 20050823, end: 20080915
  3. COZAAR [Concomitant]
     Indication: HYPERTENSION
     Dosage: 25 MG, DAILY (1/D)
     Dates: start: 20071207, end: 20080703
  4. PREVACID [Concomitant]
     Indication: GASTROOESOPHAGEAL REFLUX DISEASE
     Dosage: 60 MG, DAILY (1/D)
     Dates: start: 20010330
  5. METFORMIN HCL [Concomitant]
     Indication: DIABETES MELLITUS
     Dosage: 2.5 G, DAILY (1/D)
     Dates: start: 20000925
  6. CRESTOR [Concomitant]
     Indication: LIPIDS
     Dosage: 10 MG, DAILY (1/D)
     Dates: start: 20060313
  7. GLUCOSAMINE [Concomitant]
     Indication: ARTHRITIS
     Dosage: UNK, UNK
     Dates: start: 20000411
  8. ASPIRIN [Concomitant]
     Indication: DIABETES MELLITUS
     Dosage: 81 MG, DAILY (1/D)
     Dates: start: 19990823
  9. CENTRUM SILVER [Concomitant]

REACTIONS (7)
  - ABDOMINAL PAIN [None]
  - ANOREXIA [None]
  - ASTHENIA [None]
  - MALAISE [None]
  - NAUSEA [None]
  - PANCREATIC NEOPLASM [None]
  - WEIGHT DECREASED [None]
